FAERS Safety Report 6903030-0 (Version None)
Quarter: 2010Q3

REPORT INFORMATION
  Report Type: 
  Country: None (occurrence: None)
  Receive Date: 20100803
  Receipt Date: 20080605
  Transmission Date: 20110219
  Serious: No
  Sender: FDA-Public Use
  Company Number: US-PFIZER INC-2008035081

PATIENT
  Sex: Female

DRUGS (4)
  1. LYRICA [Suspect]
     Dates: start: 20080301
  2. METFORMIN HCL [Concomitant]
  3. GLIMEPIRIDE [Concomitant]
  4. SITAGLIPTIN [Concomitant]

REACTIONS (4)
  - ABDOMINAL DISCOMFORT [None]
  - DISTURBANCE IN ATTENTION [None]
  - DYSPEPSIA [None]
  - NAUSEA [None]
